FAERS Safety Report 9208959 (Version 6)
Quarter: 2014Q1

REPORT INFORMATION
  Report Type: Report from Study
  Country: US (occurrence: US)
  Receive Date: 20130404
  Receipt Date: 20140128
  Transmission Date: 20141002
  Serious: Yes (Hospitalization)
  Sender: FDA-Public Use
  Company Number: PHEH2013US007102

PATIENT
  Age: 73 Year
  Sex: Female
  Weight: 80.27 kg

DRUGS (17)
  1. TASIGNA [Suspect]
     Indication: CHRONIC MYELOID LEUKAEMIA
     Dosage: 300 MG, BID
     Route: 048
     Dates: start: 20130227
  2. NEXIUM I.V. [Concomitant]
     Route: 042
  3. DIOVAN [Concomitant]
  4. SYNTHROID [Concomitant]
  5. XANAX [Concomitant]
     Dosage: UNK UKN, UNK
  6. NAPROXEN [Concomitant]
     Dosage: UNK UKN, UNK
  7. VICODIN [Concomitant]
     Dosage: UNK UKN, UNK
  8. METFORMIN [Concomitant]
     Dosage: UNK UKN, UNK
  9. CARVEDILOL [Concomitant]
     Dosage: UNK UKN, UNK
  10. PREMARIN [Concomitant]
     Dosage: UNK UKN, UNK
  11. CENTRUM SILVER [Concomitant]
     Dosage: UNK UKN, UNK
  12. CALCIUM [Concomitant]
     Dosage: UNK UKN, UNK
  13. MAGNESIUM [Concomitant]
     Dosage: UNK UKN, UNK
  14. FISH OIL [Concomitant]
     Dosage: UNK UKN, UNK
  15. PROBIOTICS [Concomitant]
     Dosage: UNK UKN, UNK
  16. FLEXERIL [Concomitant]
     Dosage: UNK UKN, UNK
  17. HYDROCODONE/ACETAMINOPHEN          /01554201/ [Concomitant]

REACTIONS (13)
  - Costochondritis [Recovering/Resolving]
  - Chest pain [Recovering/Resolving]
  - Mobility decreased [Not Recovered/Not Resolved]
  - Musculoskeletal stiffness [Recovering/Resolving]
  - Blood iron abnormal [Unknown]
  - Rash [Not Recovered/Not Resolved]
  - Pruritus [Unknown]
  - Tinnitus [Not Recovered/Not Resolved]
  - Headache [Not Recovered/Not Resolved]
  - Dry skin [Not Recovered/Not Resolved]
  - Dizziness [Not Recovered/Not Resolved]
  - Dry eye [Unknown]
  - Fatigue [Not Recovered/Not Resolved]
